FAERS Safety Report 22399860 (Version 3)
Quarter: 2023Q2

REPORT INFORMATION
  Report Type: Spontaneous
  Country: US (occurrence: US)
  Receive Date: 20230602
  Receipt Date: 20230629
  Transmission Date: 20230721
  Serious: No
  Sender: FDA-Public Use
  Company Number: US-PFIZER INC-202300198895

PATIENT
  Age: 33 Year
  Sex: Female
  Weight: 79.38 kg

DRUGS (3)
  1. SOMAVERT [Suspect]
     Active Substance: PEGVISOMANT
     Indication: Acromegaly
     Dosage: 10 MG
     Dates: start: 202208
  2. SOMAVERT [Suspect]
     Active Substance: PEGVISOMANT
     Dosage: 15 MG, DAILY
  3. SOMAVERT [Suspect]
     Active Substance: PEGVISOMANT
     Dosage: 30 MG, WEEKLY (ONCE PER WEEK)

REACTIONS (4)
  - Blood test abnormal [Unknown]
  - Product preparation issue [Unknown]
  - Poor quality product administered [Unknown]
  - Product physical issue [Unknown]
